FAERS Safety Report 6983787-3 (Version None)
Quarter: 2010Q3

REPORT INFORMATION
  Report Type: 
  Country: None (occurrence: None)
  Receive Date: 20100914
  Receipt Date: 20080505
  Transmission Date: 20110219
  Serious: Yes (Hospitalization)
  Sender: FDA-Public Use
  Company Number: US-WYE-H07165308

PATIENT
  Age: 10 Year
  Sex: Male
  Weight: 49.94 kg

DRUGS (3)
  1. CHILDREN'S ADVIL [Suspect]
     Indication: MALAISE
     Dosage: TOOK ONE BOTTLE OVER SEVERAL WEEKS
     Route: 048
  2. CHILDREN'S ADVIL [Suspect]
     Indication: PYREXIA
  3. ACETAMINOPHEN [Suspect]
     Dosage: UNKNOWN
     Route: 065

REACTIONS (3)
  - BLOOD CREATININE INCREASED [None]
  - HYPERKALAEMIA [None]
  - TUBULOINTERSTITIAL NEPHRITIS [None]
